FAERS Safety Report 20109850 (Version 1)
Quarter: 2021Q4

REPORT INFORMATION
  Report Type: Spontaneous
  Country: US (occurrence: US)
  Receive Date: 20211124
  Receipt Date: 20211124
  Transmission Date: 20220304
  Serious: Yes (Hospitalization)
  Sender: FDA-Public Use
  Company Number: US-KOREA IPSEN Pharma-2021-29250

PATIENT
  Sex: Female
  Weight: 75.74 kg

DRUGS (2)
  1. SOMATULINE DEPOT [Suspect]
     Active Substance: LANREOTIDE ACETATE
     Indication: Product used for unknown indication
     Dosage: 120 MG/0.5 ML
     Route: 065
  2. CABOMETYX [Concomitant]
     Active Substance: CABOZANTINIB S-MALATE
     Dosage: 40 MG TABLET DAILY BY MOUTH, ONCE DAILY
     Route: 048

REACTIONS (2)
  - Viral infection [Not Recovered/Not Resolved]
  - Product administered by wrong person [Unknown]
